FAERS Safety Report 6276441-7 (Version None)
Quarter: 2009Q3

REPORT INFORMATION
  Report Type: 
  Country: None (occurrence: None)
  Receive Date: 20090722
  Receipt Date: 20090713
  Transmission Date: 20100115
  Serious: No
  Sender: FDA-Public Use
  Company Number: US-JNJFOC-20070300884

PATIENT
  Sex: Female
  Weight: 52.16 kg

DRUGS (12)
  1. DURAGESIC-100 [Suspect]
     Route: 062
  2. DURAGESIC-100 [Suspect]
     Indication: PAIN
     Route: 062
  3. FENTANYL TRANSDERMAL SYSTEM [Suspect]
     Indication: PAIN
     Route: 062
  4. FENTANYL TRANSDERMAL SYSTEM [Suspect]
     Indication: FIBROMYALGIA
     Route: 062
  5. XANAX [Concomitant]
     Indication: ANXIETY
     Route: 048
  6. OXYCODONE [Concomitant]
     Indication: PAIN
     Route: 048
  7. GABITRIL [Concomitant]
     Indication: MIGRAINE
     Dosage: AT NIGHT
     Route: 048
  8. TRAZODONE [Concomitant]
     Indication: SLEEP DISORDER
     Dosage: AT NIGHT
     Route: 048
  9. SOMA [Concomitant]
     Indication: MUSCLE SPASMS
     Route: 048
  10. SINGULAIR [Concomitant]
     Indication: MULTIPLE ALLERGIES
     Dosage: AT NIGHT
     Route: 048
  11. ZYRTEC-D 12 HOUR [Concomitant]
     Indication: MULTIPLE ALLERGIES
     Route: 048
  12. BECONASE AQ [Concomitant]
     Indication: MULTIPLE ALLERGIES
     Dosage: 2 PUFFS PER DAY
     Route: 055

REACTIONS (17)
  - APPLICATION SITE IRRITATION [None]
  - APPLICATION SITE REACTION [None]
  - APPLICATION SITE SWELLING [None]
  - DRUG ADMINISTERED AT INAPPROPRIATE SITE [None]
  - DRUG PRESCRIBING ERROR [None]
  - GAIT DISTURBANCE [None]
  - NAUSEA [None]
  - PAIN [None]
  - POST-TRAUMATIC STRESS DISORDER [None]
  - PRODUCT QUALITY ISSUE [None]
  - PYREXIA [None]
  - RASH [None]
  - SUNBURN [None]
  - TANNING [None]
  - TREMOR [None]
  - VOMITING [None]
  - WITHDRAWAL SYNDROME [None]
